FAERS Safety Report 15680991 (Version 1)
Quarter: 2018Q4

REPORT INFORMATION
  Report Type: Spontaneous
  Country: KR (occurrence: KR)
  Receive Date: 20181203
  Receipt Date: 20181203
  Transmission Date: 20190205
  Serious: Yes (Life-Threatening, Hospitalization)
  Sender: FDA-Public Use
  Company Number: KR-MYLANLABS-2018M1088006

PATIENT
  Age: 27 Year
  Sex: Male

DRUGS (8)
  1. PREDNISOLONE. [Suspect]
     Active Substance: PREDNISOLONE
     Indication: GRAFT VERSUS HOST DISEASE IN SKIN
     Dosage: HIGH-DOSE THERAPY AT }1 MG/KG PER DAY
     Route: 065
  2. PERAMIVIR [Concomitant]
     Active Substance: PERAMIVIR
     Dosage: 600 MG ONCE
     Route: 065
  3. CEFEPIME [Concomitant]
     Active Substance: CEFEPIME HYDROCHLORIDE
     Route: 065
  4. POSACONAZOLE [Concomitant]
     Active Substance: POSACONAZOLE
     Indication: ANTIFUNGAL PROPHYLAXIS
     Dosage: FOR 2 DOSES
     Route: 065
  5. LEVOFLOXACIN. [Concomitant]
     Active Substance: LEVOFLOXACIN
     Route: 065
  6. POSACONAZOLE [Concomitant]
     Active Substance: POSACONAZOLE
     Route: 065
  7. TEICOPLANIN [Concomitant]
     Active Substance: TEICOPLANIN
     Route: 065
  8. TEICOPLANIN [Concomitant]
     Active Substance: TEICOPLANIN
     Dosage: FOR 3 DOSES
     Route: 065

REACTIONS (2)
  - Bronchopulmonary aspergillosis [Recovering/Resolving]
  - Septic shock [Recovered/Resolved]
